FAERS Safety Report 9262431 (Version 1)
Quarter: 2013Q2

REPORT INFORMATION
  Report Type: Spontaneous
  Country: US (occurrence: None)
  Receive Date: 20130425
  Receipt Date: 20130425
  Transmission Date: 20140414
  Serious: Yes (Other)
  Sender: FDA-Public Use
  Company Number: None

PATIENT
  Age: 30 Year
  Sex: Male
  Weight: 88.45 kg

DRUGS (1)
  1. ESCITALOPRAM [Suspect]
     Indication: OBSESSIVE-COMPULSIVE DISORDER
     Dosage: 1
     Route: 048
     Dates: start: 20130415, end: 20130416

REACTIONS (3)
  - Feeling abnormal [None]
  - Impaired work ability [None]
  - Product substitution issue [None]
